FAERS Safety Report 18904393 (Version 1)
Quarter: 2021Q1

REPORT INFORMATION
  Report Type: Spontaneous
  Country: US (occurrence: US)
  Receive Date: 20210217
  Receipt Date: 20210217
  Transmission Date: 20210420
  Serious: Yes (Hospitalization)
  Sender: FDA-Public Use
  Company Number: None

PATIENT
  Age: 75 Year
  Sex: Male
  Weight: 79.5 kg

DRUGS (2)
  1. CARBOPLATIN. [Suspect]
     Active Substance: CARBOPLATIN
     Dates: end: 20181112
  2. ETOPOSIDE (VP?16) [Suspect]
     Active Substance: ETOPOSIDE
     Dates: end: 20181114

REACTIONS (7)
  - Chronic respiratory disease [None]
  - Condition aggravated [None]
  - Anaemia [None]
  - Platelet count decreased [None]
  - Platelet transfusion [None]
  - Neutrophil count decreased [None]
  - Packed red blood cell transfusion [None]

NARRATIVE: CASE EVENT DATE: 20181126
